FAERS Safety Report 6955303-3 (Version None)
Quarter: 2010Q3

REPORT INFORMATION
  Report Type: 
  Country: None (occurrence: None)
  Receive Date: 20100830
  Receipt Date: 20100823
  Transmission Date: 20110219
  Serious: Yes (Hospitalization, Other)
  Sender: FDA-Public Use
  Company Number: FR-SANOFI-AVENTIS-2010SA027997

PATIENT
  Age: 49 Year
  Sex: Female
  Weight: 52 kg

DRUGS (8)
  1. LANTUS [Suspect]
     Route: 058
     Dates: start: 20050101
  2. NOVORAPID [Concomitant]
     Route: 058
  3. FENOFIBRATE [Concomitant]
     Route: 048
  4. LEVOCARNIL [Concomitant]
     Indication: MITOCHONDRIAL CYTOPATHY
     Route: 048
  5. IUVACOR [Concomitant]
     Indication: MITOCHONDRIAL CYTOPATHY
     Route: 048
  6. BISOPROLOL FUMARATE [Concomitant]
     Route: 048
  7. TRIATEC [Concomitant]
     Route: 048
  8. OMACOR [Concomitant]
     Route: 048

REACTIONS (1)
  - BREAST CANCER [None]
